FAERS Safety Report 6999205-5 (Version None)
Quarter: 2010Q3

REPORT INFORMATION
  Report Type: 
  Country: None (occurrence: None)
  Receive Date: 20100920
  Receipt Date: 20100412
  Transmission Date: 20110219
  Serious: Yes (Other)
  Sender: FDA-Public Use
  Company Number: US-ASTRAZENECA-2010SE18409

PATIENT
  Age: 15705 Day
  Sex: Male
  Weight: 64.9 kg

DRUGS (3)
  1. SEROQUEL [Suspect]
     Route: 048
     Dates: start: 20070718
  2. LUNESTA [Concomitant]
     Dates: start: 20090127
  3. DEPAKOTE [Concomitant]
     Dates: start: 20070718

REACTIONS (5)
  - ADVERSE DRUG REACTION [None]
  - DIABETES MELLITUS [None]
  - ERECTILE DYSFUNCTION [None]
  - HYPERLIPIDAEMIA [None]
  - HYPERTENSION [None]
